FAERS Safety Report 8282287-0 (Version None)
Quarter: 2012Q2

REPORT INFORMATION
  Report Type: 
  Country: None (occurrence: None)
  Receive Date: 20120413
  Receipt Date: 20120404
  Transmission Date: 20120825
  Serious: Yes (Hospitalization, Other)
  Sender: FDA-Public Use
  Company Number: US-JNJFOC-20120209055

PATIENT
  Sex: Male
  Weight: 38.9 kg

DRUGS (8)
  1. FERROUS SULFATE TAB [Concomitant]
  2. MULTI-VITAMINS [Concomitant]
  3. OMEGA-3 FATTY ACIDS [Concomitant]
  4. ZYRTEC [Concomitant]
  5. VITAMIN D [Concomitant]
  6. REMICADE [Suspect]
     Indication: INFLAMMATORY BOWEL DISEASE
     Route: 042
     Dates: start: 20101104
  7. CALCIUM CARBONATE [Concomitant]
  8. MESALAMINE [Concomitant]
     Route: 048

REACTIONS (2)
  - CONCUSSION [None]
  - POST-TRAUMATIC HEADACHE [None]
